FAERS Safety Report 4697758-3 (Version None)
Quarter: 2005Q2

REPORT INFORMATION
  Report Type: 
  Country: None (occurrence: None)
  Receive Date: 20050623
  Receipt Date: 20050613
  Transmission Date: 20051028
  Serious: Yes (Hospitalization, Other)
  Sender: FDA-Public Use
  Company Number: JP-JNJFOC-20050504878

PATIENT
  Sex: Male

DRUGS (11)
  1. RISPERDAL [Suspect]
     Route: 049
  2. RISPERDAL [Suspect]
     Route: 049
  3. RISPERDAL [Suspect]
     Route: 049
  4. RISPERDAL [Suspect]
     Route: 049
  5. RISPERDAL [Suspect]
     Route: 049
  6. RISPERDAL [Suspect]
     Dosage: PRN
     Route: 049
  7. ZOPICLONE [Concomitant]
  8. ZOPICLONE [Concomitant]
     Dosage: PRN
  9. LOVASTATIN [Concomitant]
  10. DONEZEPIL [Concomitant]
     Dosage: D/C IN JUL-04
  11. TRAZODONE [Concomitant]

REACTIONS (4)
  - DECREASED APPETITE [None]
  - GAIT DISTURBANCE [None]
  - PARKINSONISM [None]
  - RHABDOMYOLYSIS [None]
